FAERS Safety Report 14235869 (Version 1)
Quarter: 2017Q4

REPORT INFORMATION
  Report Type: Spontaneous
  Country: US (occurrence: US)
  Receive Date: 20171129
  Receipt Date: 20171129
  Transmission Date: 20180321
  Serious: No
  Sender: FDA-Public Use
  Company Number: US-BAYER-2017-223135

PATIENT
  Sex: Female

DRUGS (3)
  1. BETASERON [Suspect]
     Active Substance: INTERFERON BETA-1B
     Dosage: UNK
  2. NEXAVAR [Concomitant]
     Active Substance: SORAFENIB
  3. STIVARGA [Concomitant]
     Active Substance: REGORAFENIB

REACTIONS (2)
  - Injection site scar [None]
  - Injection site ulcer [None]
